FAERS Safety Report 12831470 (Version 2)
Quarter: 2016Q4

REPORT INFORMATION
  Report Type: Spontaneous
  Country: US (occurrence: TH)
  Receive Date: 20161009
  Receipt Date: 20161009
  Transmission Date: 20170207
  Serious: Yes (Other)
  Sender: FDA-Public Use
  Company Number: US-ABBVIE-16P-163-1748866-00

PATIENT
  Age: 24 Year
  Sex: Male

DRUGS (1)
  1. LUPRON DEPOT [Suspect]
     Active Substance: LEUPROLIDE ACETATE
     Indication: ENDOMETRIOSIS
     Route: 050

REACTIONS (6)
  - Adenomyosis [Unknown]
  - Ovarian cyst torsion [Unknown]
  - Pain [Unknown]
  - Hysterectomy [Recovering/Resolving]
  - Ovarian cyst ruptured [Unknown]
  - Endometriosis [Unknown]

NARRATIVE: CASE EVENT DATE: 20160923
